FAERS Safety Report 8307608-1 (Version None)
Quarter: 2012Q2

REPORT INFORMATION
  Report Type: 
  Country: None (occurrence: None)
  Receive Date: 20120424
  Receipt Date: 20120416
  Transmission Date: 20120825
  Serious: Yes (Hospitalization)
  Sender: FDA-Public Use
  Company Number: TW-PFIZER INC-2012091996

PATIENT
  Age: 56 Year
  Sex: Female

DRUGS (5)
  1. ISONIAZID [Concomitant]
     Indication: MENINGITIS TUBERCULOUS
     Dosage: 300 MG, 1X/DAY
     Route: 048
  2. SILYMARIN [Concomitant]
     Dosage: UNK
     Route: 048
  3. MYCOBUTIN [Suspect]
     Indication: MENINGITIS TUBERCULOUS
     Dosage: 300 MG, 1X/DAY
     Route: 048
     Dates: start: 20111201, end: 20120412
  4. PYRAZINAMIDE [Concomitant]
     Indication: MENINGITIS TUBERCULOUS
     Dosage: 1000 MG, 1X/DAY
     Route: 048
  5. BENZBROMARONE [Concomitant]
     Indication: HYPERURICAEMIA
     Dosage: UNK

REACTIONS (1)
  - PIGMENTATION DISORDER [None]
